FAERS Safety Report 9536407 (Version 1)
Quarter: 2013Q2

REPORT INFORMATION
  Report Type: Spontaneous
  Country: US (occurrence: None)
  Receive Date: 20130507
  Receipt Date: 20130507
  Transmission Date: 20140414
  Serious: No
  Sender: FDA-Public Use
  Company Number: PHEH2013US000625

PATIENT
  Age: 43 Year
  Sex: Female
  Weight: 104.3 kg

DRUGS (7)
  1. AFINITOR [Suspect]
     Route: 048
  2. VERAPAMIL (VERAPAMIL) [Concomitant]
  3. LOPRESSOR (METOPROLOL TARTRATE) [Concomitant]
  4. BACTRIM [Concomitant]
  5. OMEPRAZOLE (OMEPRAZOLE) [Concomitant]
  6. TORSEMIDE [Concomitant]
  7. AMLODIPINE (AMLODIPINE) [Concomitant]

REACTIONS (3)
  - Pyrexia [None]
  - Dysgeusia [None]
  - Menorrhagia [None]
